APPROVED DRUG PRODUCT: ANASTROZOLE
Active Ingredient: ANASTROZOLE
Strength: 1MG
Dosage Form/Route: TABLET;ORAL
Application: A079007 | Product #001
Applicant: SANDOZ INC
Approved: Jun 28, 2010 | RLD: No | RS: No | Type: DISCN